FAERS Safety Report 6100117-X (Version None)
Quarter: 2009Q1

REPORT INFORMATION
  Report Type: 
  Country: None (occurrence: None)
  Receive Date: 20090226
  Receipt Date: 20090222
  Transmission Date: 20090719
  Serious: Yes (Death)
  Sender: FDA-Public Use
  Company Number: 230171K09GRC

PATIENT
  Sex: Male

DRUGS (2)
  1. REBIF [Suspect]
     Dates: start: 20080901, end: 20081001
  2. ANTIDIABETIC MEDICATION (ANTI-DIABETICS) [Concomitant]

REACTIONS (1)
  - PULMONARY OEDEMA [None]
